FAERS Safety Report 24429956 (Version 1)
Quarter: 2024Q4

REPORT INFORMATION
  Report Type: Report from Study
  Country: FR (occurrence: FR)
  Receive Date: 20241012
  Receipt Date: 20241012
  Transmission Date: 20250115
  Serious: Yes (Other)
  Sender: ALEXION PHARMACEUTICALS
  Company Number: FR-ROCHE-10000090079

PATIENT
  Age: 71 Year
  Weight: 62 kg

DRUGS (1)
  1. TAGRISSO [Suspect]
     Active Substance: OSIMERTINIB
     Indication: Neoplasm malignant
     Dosage: IN AN UNKNOWN DATE IN AUG/2023, SHE RECEIVED MOST RECENT DOSE OF (80 MG) OF TAGRISSO

REACTIONS (1)
  - Skin toxicity [Recovered/Resolved]
